FAERS Safety Report 9709755 (Version 1)
Quarter: 2013Q4

REPORT INFORMATION
  Report Type: Spontaneous
  Country: BR (occurrence: BR)
  Receive Date: 20131126
  Receipt Date: 20131126
  Transmission Date: 20140711
  Serious: Yes (Other)
  Sender: FDA-Public Use
  Company Number: BR-ACCORD-020468

PATIENT
  Age: 42 Year
  Sex: Female
  Weight: 74 kg

DRUGS (1)
  1. ACCORD^S PACLITAXEL [Suspect]
     Indication: CHEMOTHERAPY
     Route: 042

REACTIONS (3)
  - Pain [Recovered/Resolved]
  - Hypertension [Recovered/Resolved]
  - Puncture site pain [Recovered/Resolved]
